FAERS Safety Report 21621789 (Version 2)
Quarter: 2022Q4

REPORT INFORMATION
  Report Type: Spontaneous
  Country: PR (occurrence: PR)
  Receive Date: 20221121
  Receipt Date: 20221216
  Transmission Date: 20230113
  Serious: Yes (Other)
  Sender: FDA-Public Use
  Company Number: PR-PFIZER INC-PV202200104690

PATIENT
  Age: 11 Year
  Sex: Male
  Weight: 60.771 kg

DRUGS (1)
  1. GENOTROPIN [Suspect]
     Active Substance: SOMATROPIN
     Dosage: UNK
     Dates: start: 201811

REACTIONS (3)
  - Hypertension [Unknown]
  - Headache [Unknown]
  - Arthralgia [Unknown]
